FAERS Safety Report 8063172-6 (Version None)
Quarter: 2012Q1

REPORT INFORMATION
  Report Type: 
  Country: None (occurrence: None)
  Receive Date: 20120123
  Receipt Date: 20120116
  Transmission Date: 20120608
  Serious: Yes (Hospitalization)
  Sender: FDA-Public Use
  Company Number: PHHY2011US67793

PATIENT
  Sex: Female

DRUGS (1)
  1. EXJADE [Suspect]
     Dosage: 2000 MG, QD
     Route: 048

REACTIONS (5)
  - ABDOMINAL PAIN [None]
  - FALL [None]
  - CEREBROVASCULAR ACCIDENT [None]
  - VOMITING [None]
  - CELLULITIS [None]
